FAERS Safety Report 22155796 (Version 2)
Quarter: 2023Q2

REPORT INFORMATION
  Report Type: Report from Study
  Country: CO (occurrence: CO)
  Receive Date: 20230330
  Receipt Date: 20230414
  Transmission Date: 20230722
  Serious: Yes (Death, Hospitalization)
  Sender: FDA-Public Use
  Company Number: CO-EUROCEPT-EC20230034

PATIENT

DRUGS (2)
  1. PHEBURANE [Suspect]
     Active Substance: SODIUM PHENYLBUTYRATE
     Indication: Hyperammonaemia
     Dosage: 4 GRAM EVERY 8 HOURS
     Route: 048
     Dates: start: 20221219, end: 20230315
  2. PHEBURANE [Suspect]
     Active Substance: SODIUM PHENYLBUTYRATE
     Dosage: UNK
     Route: 048
     Dates: start: 20230321

REACTIONS (2)
  - Death [Fatal]
  - Aggression [Unknown]

NARRATIVE: CASE EVENT DATE: 20230313
